FAERS Safety Report 6414586-9 (Version None)
Quarter: 2009Q4

REPORT INFORMATION
  Report Type: 
  Country: None (occurrence: None)
  Receive Date: 20091026
  Receipt Date: 20091016
  Transmission Date: 20100525
  Serious: Yes (Hospitalization, Other)
  Sender: FDA-Public Use
  Company Number: US-AMGEN-QUU359905

PATIENT
  Sex: Male

DRUGS (3)
  1. ENBREL [Suspect]
     Indication: PSORIASIS
     Route: 058
     Dates: start: 20090210, end: 20090801
  2. CHOLESTYRAMINE [Concomitant]
  3. UNSPECIFIED MEDICATION [Concomitant]

REACTIONS (9)
  - CLUSTER HEADACHE [None]
  - DISORIENTATION [None]
  - DIZZINESS [None]
  - FEELING ABNORMAL [None]
  - HEMIPARESIS [None]
  - HYPOAESTHESIA [None]
  - LETHARGY [None]
  - MENTAL IMPAIRMENT [None]
  - SOMNOLENCE [None]
